FAERS Safety Report 16648785 (Version 2)
Quarter: 2019Q3

REPORT INFORMATION
  Report Type: Spontaneous
  Country: BR (occurrence: BR)
  Receive Date: 20190730
  Receipt Date: 20190802
  Transmission Date: 20191004
  Serious: Yes (Other)
  Sender: FDA-Public Use
  Company Number: BR-ASTRAZENECA-2019SF06442

PATIENT
  Sex: Female

DRUGS (1)
  1. LYNPARZA [Suspect]
     Active Substance: OLAPARIB
     Indication: OVARIAN CANCER
     Dosage: 800.0MG UNKNOWN
     Route: 048
     Dates: start: 201810, end: 201907

REACTIONS (2)
  - Anaemia [Recovering/Resolving]
  - Myelodysplastic syndrome [Unknown]

NARRATIVE: CASE EVENT DATE: 201907
